FAERS Safety Report 5362114-1 (Version None)
Quarter: 2007Q2

REPORT INFORMATION
  Report Type: 
  Country: None (occurrence: None)
  Receive Date: 20070618
  Receipt Date: 20070618
  Transmission Date: 20071010
  Serious: No
  Sender: FDA-Public Use
  Company Number: None

PATIENT

DRUGS (4)
  1. FENTANYL TRANSDERMAL SYSTEM [Suspect]
     Dosage: PATCH
  2. CLONIDINE HCL [Suspect]
     Dosage: PATCH
  3. NICOTINE TRANSDERMAL SYSTEM [Suspect]
     Dosage: PATCH
  4. NITRGLYCERIN TRANSDERMAL SYSTEM [Suspect]
     Dosage: PATCH

REACTIONS (4)
  - MEDICATION ERROR [None]
  - OXYGEN SATURATION DECREASED [None]
  - PHARMACEUTICAL PRODUCT COMPLAINT [None]
  - RESPIRATORY RATE DECREASED [None]
